FAERS Safety Report 5198150-8 (Version None)
Quarter: 2006Q4

REPORT INFORMATION
  Report Type: 
  Country: None (occurrence: None)
  Receive Date: 20061227
  Receipt Date: 20061211
  Transmission Date: 20070319
  Serious: Yes (Other)
  Sender: FDA-Public Use
  Company Number: 2006152896

PATIENT
  Sex: Male

DRUGS (4)
  1. LYRICA [Suspect]
     Indication: PAIN
     Dosage: 150 MG (75 MG, 2 IN 1 D)
  2. CLONAZEPAM [Concomitant]
  3. IMOVANE (ZOPICLONE) [Concomitant]
  4. CODOLIPRANE (CODEINE PHOSPHATE, PARACETAMOL) [Concomitant]

REACTIONS (1)
  - RASH MACULO-PAPULAR [None]
